FAERS Safety Report 20730030 (Version 3)
Quarter: 2022Q4

REPORT INFORMATION
  Report Type: Spontaneous
  Country: JP (occurrence: JP)
  Receive Date: 20220420
  Receipt Date: 20221117
  Transmission Date: 20230113
  Serious: No
  Sender: FDA-Public Use
  Company Number: JP-GLAXOSMITHKLINE-JP2022JPN064851

PATIENT

DRUGS (6)
  1. SOTROVIMAB [Suspect]
     Active Substance: SOTROVIMAB
     Indication: COVID-19
     Dosage: UNK
     Route: 042
     Dates: start: 20220412
  2. COMIRNATY [Suspect]
     Active Substance: TOZINAMERAN
     Indication: Prophylaxis
     Route: 030
  3. COMIRNATY [Suspect]
     Active Substance: TOZINAMERAN
     Indication: Prophylaxis
     Route: 030
  4. CALONAL [Suspect]
     Active Substance: ACETAMINOPHEN
     Dosage: 400 MG X 20 TIMES
     Route: 048
     Dates: start: 20220412
  5. CARBOCYSTEINE [Suspect]
     Active Substance: CARBOCYSTEINE
     Dosage: 1500 MG PER DAY
     Route: 048
     Dates: start: 20220412, end: 20220418
  6. DEXTROMETHORPHAN HYDROBROMIDE [Suspect]
     Active Substance: DEXTROMETHORPHAN HYDROBROMIDE
     Dosage: 45 MG PER DAY
     Route: 048
     Dates: start: 20220412, end: 20220418

REACTIONS (4)
  - Caesarean section [Unknown]
  - Premature delivery [Unknown]
  - Exposure during pregnancy [Unknown]
  - Live birth [Unknown]

NARRATIVE: CASE EVENT DATE: 20220810
